FAERS Safety Report 8803445 (Version 2)
Quarter: 2012Q4

REPORT INFORMATION
  Report Type: 
  Country: US (occurrence: US)
  Receive Date: 20120924
  Receipt Date: 20121004
  Transmission Date: 20130627
  Serious: Yes (Other)
  Sender: FDA-Public Use
  Company Number: US-BRISTOL-MYERS SQUIBB COMPANY-16976078

PATIENT
  Age: 57 Year
  Sex: Female

DRUGS (5)
  1. ORENCIA [Suspect]
     Indication: RHEUMATOID ARTHRITIS
     Dosage: Interrupted on Aug11.  Last inf: 13Sep12;Next inf due on: 11Oct12.
     Route: 042
     Dates: start: 20101025
  2. METHOTREXATE [Concomitant]
  3. MELOXICAM [Concomitant]
  4. CYMBALTA [Concomitant]
  5. NIACIN [Concomitant]

REACTIONS (2)
  - Arthropathy [Unknown]
  - Headache [Unknown]
